FAERS Safety Report 7103329-1 (Version None)
Quarter: 2010Q4

REPORT INFORMATION
  Report Type: 
  Country: None (occurrence: None)
  Receive Date: 20101115
  Receipt Date: 20101102
  Transmission Date: 20110411
  Serious: Yes (Hospitalization)
  Sender: FDA-Public Use
  Company Number: PHHO2010GB14736

PATIENT
  Sex: Male
  Weight: 89.2 kg

DRUGS (5)
  1. ZOLEDRONATE T29581+SOLINJ+BM [Suspect]
     Indication: METASTASES TO BONE
     Dosage: UNK
     Route: 042
     Dates: start: 20100910
  2. DOCETAXEL [Suspect]
     Dosage: UNK
     Dates: start: 20100910
  3. PREDNISOLONE [Concomitant]
  4. VITAMIN D [Concomitant]
  5. CALCIUM [Concomitant]

REACTIONS (9)
  - ANAEMIA [None]
  - CHEST X-RAY ABNORMAL [None]
  - DYSPNOEA [None]
  - FEBRILE NEUTROPENIA [None]
  - LOWER RESPIRATORY TRACT INFECTION [None]
  - PLEURAL EFFUSION [None]
  - PLEURAL FIBROSIS [None]
  - PLEURAL FLUID ANALYSIS [None]
  - PYREXIA [None]
